FAERS Safety Report 7560699-8 (Version None)
Quarter: 2011Q2

REPORT INFORMATION
  Report Type: 
  Country: None (occurrence: None)
  Receive Date: 20110621
  Receipt Date: 20110616
  Transmission Date: 20111010
  Serious: Yes (Hospitalization, Other)
  Sender: FDA-Public Use
  Company Number: US-PFIZER INC-2011069797

PATIENT
  Sex: Female

DRUGS (1)
  1. CHANTIX [Suspect]
     Indication: SMOKING CESSATION THERAPY
     Dosage: STARTER PACK AND CONTINUING PACK
     Dates: start: 20080101, end: 20080301

REACTIONS (10)
  - ANXIETY [None]
  - COGNITIVE DISORDER [None]
  - FATIGUE [None]
  - DECREASED APPETITE [None]
  - WEIGHT DECREASED [None]
  - SLEEP DISORDER [None]
  - PANIC ATTACK [None]
  - HEART RATE INCREASED [None]
  - DEPRESSION [None]
  - SUICIDAL IDEATION [None]
